FAERS Safety Report 14879347 (Version 2)
Quarter: 2018Q2

REPORT INFORMATION
  Report Type: Spontaneous
  Country: US (occurrence: US)
  Receive Date: 20180511
  Receipt Date: 20180601
  Transmission Date: 20180711
  Serious: No
  Sender: FDA-Public Use
  Company Number: US-PFIZER INC-2018188788

PATIENT
  Age: 3 Year
  Sex: Male
  Weight: 13.61 kg

DRUGS (2)
  1. GENOTROPIN [Suspect]
     Active Substance: SOMATROPIN
     Indication: GROWTH HORMONE DEFICIENCY
     Dosage: 4.2 MG, WEEKLY (0.6 MG PER DAY X 7DAYS PER WEEK)
     Dates: start: 20180414
  2. GENOTROPIN [Suspect]
     Active Substance: SOMATROPIN
     Dosage: 0.6 MG, 1X/DAY (INJECTION NIGHTLY)
     Dates: start: 2018

REACTIONS (2)
  - Therapeutic response unexpected [Unknown]
  - Wrong technique in device usage process [Unknown]

NARRATIVE: CASE EVENT DATE: 20180528
